FAERS Safety Report 7940174-9 (Version None)
Quarter: 2011Q4

REPORT INFORMATION
  Report Type: 
  Country: None (occurrence: None)
  Receive Date: 20111125
  Receipt Date: 20111114
  Transmission Date: 20120403
  Serious: Yes (Hospitalization)
  Sender: FDA-Public Use
  Company Number: PHHO2011NL019116

PATIENT
  Sex: Male
  Weight: 85 kg

DRUGS (8)
  1. SANDIMMUNE [Suspect]
     Indication: STEM CELL TRANSPLANT
     Dosage: 125 MG, UNK
     Route: 048
     Dates: start: 20110925
  2. PREDNISOLONE [Suspect]
     Dosage: 50 MG, UNK
     Route: 048
     Dates: start: 20111028
  3. PREDNISOLONE [Suspect]
     Dosage: 20 MG, UNK
     Dates: start: 20111027
  4. VALACICLOVIR [Suspect]
     Indication: STEM CELL TRANSPLANT
     Dosage: 500 MG, UNK
     Route: 048
     Dates: start: 20110930
  5. COTRIM [Suspect]
     Indication: PROPHYLAXIS
     Dosage: 480 MG, UNK
     Route: 048
     Dates: start: 20111012
  6. PREDNISOLONE [Suspect]
     Indication: STEM CELL TRANSPLANT
     Dosage: 30 MG, UNK
     Route: 048
     Dates: start: 20111026
  7. PREDNISOLONE [Suspect]
     Dosage: 85 MG, UNK
     Route: 042
     Dates: start: 20111030
  8. MYCOPHENOLIC ACID [Suspect]
     Indication: STEM CELL TRANSPLANT
     Dosage: 1080 MG, UNK
     Route: 048
     Dates: start: 20110930

REACTIONS (2)
  - ACUTE GRAFT VERSUS HOST DISEASE IN SKIN [None]
  - DISEASE PROGRESSION [None]
